FAERS Safety Report 16758935 (Version 1)
Quarter: 2019Q3

REPORT INFORMATION
  Report Type: Spontaneous
  Country: US (occurrence: US)
  Receive Date: 20190830
  Receipt Date: 20190830
  Transmission Date: 20191005
  Serious: Yes (Hospitalization, Other)
  Sender: FDA-Public Use
  Company Number: US-GLAXOSMITHKLINE-US2019AMR155519

PATIENT
  Sex: Female

DRUGS (2)
  1. VENTOLIN HFA [Suspect]
     Active Substance: ALBUTEROL SULFATE
     Indication: PRODUCT USED FOR UNKNOWN INDICATION
     Dosage: UNK
     Route: 065
  2. ADVAIR DISKUS [Suspect]
     Active Substance: FLUTICASONE PROPIONATE\SALMETEROL XINAFOATE
     Indication: PRODUCT USED FOR UNKNOWN INDICATION
     Dosage: UNK
     Route: 065

REACTIONS (16)
  - Chronic obstructive pulmonary disease [Unknown]
  - Diabetes mellitus [Unknown]
  - Arteriosclerosis coronary artery [Unknown]
  - Hospitalisation [Unknown]
  - Staphylococcal infection [Unknown]
  - Tachycardia [Unknown]
  - Sleep apnoea syndrome [Unknown]
  - Hypoxia [Unknown]
  - Asthma [Unknown]
  - Osteoarthritis [Unknown]
  - Chronic left ventricular failure [Unknown]
  - Hypercholesterolaemia [Unknown]
  - Diabetic retinopathy [Unknown]
  - Hypertension [Unknown]
  - Pulmonary hypertension [Unknown]
  - Chest pain [Unknown]
